FAERS Safety Report 19673731 (Version 1)
Quarter: 2021Q3

REPORT INFORMATION
  Report Type: Spontaneous
  Country: US (occurrence: US)
  Receive Date: 20210808
  Receipt Date: 20210808
  Transmission Date: 20211014
  Serious: Yes (Hospitalization)
  Sender: FDA-Public Use
  Company Number: None

PATIENT
  Age: 77 Year
  Sex: Male
  Weight: 59.85 kg

DRUGS (10)
  1. LOSARTAN. [Concomitant]
     Active Substance: LOSARTAN
  2. PROBIOTIC [Concomitant]
     Active Substance: PROBIOTICS NOS
  3. VITAMIN B COMPLEX [Concomitant]
     Active Substance: CYANOCOBALAMIN\DEXPANTHENOL\NIACINAMIDE\PYRIDOXINE HYDROCHLORIDE\RIBOFLAVIN 5^-PHOSPHATE SODIUM\THIAMINE HYDROCHLORIDE\VITAMIN B COMPLEX
  4. AMLODIPINE BESYLATE. [Concomitant]
     Active Substance: AMLODIPINE BESYLATE
  5. ROVUSTATIN [Concomitant]
     Active Substance: ROSUVASTATIN
  6. CENTRUM SENIOR FOR MEN [Concomitant]
  7. DIAL COMPLETE ANTIBACTERIAL FOAMING HAND WASH SPRING WATER [Suspect]
     Active Substance: BENZALKONIUM CHLORIDE
     Indication: INFECTION PROPHYLAXIS
     Dosage: ?          OTHER ROUTE:HAND WASH?
     Dates: start: 20210805, end: 20210806
  8. SYMBICORT [Concomitant]
     Active Substance: BUDESONIDE\FORMOTEROL FUMARATE DIHYDRATE
  9. MAGNESIUM [Concomitant]
     Active Substance: MAGNESIUM
  10. VITAMIN D3 [Concomitant]
     Active Substance: CHOLECALCIFEROL

REACTIONS (9)
  - Pain [None]
  - Eye inflammation [None]
  - Product label issue [None]
  - Accidental exposure to product [None]
  - Visual impairment [None]
  - Symptom recurrence [None]
  - Drug hypersensitivity [None]
  - Eye irritation [None]
  - Product use complaint [None]
